FAERS Safety Report 8110296-0 (Version None)
Quarter: 2012Q1

REPORT INFORMATION
  Report Type: 
  Country: None (occurrence: None)
  Receive Date: 20120202
  Receipt Date: 20111209
  Transmission Date: 20120608
  Serious: Yes (Life-Threatening, Hospitalization)
  Sender: FDA-Public Use
  Company Number: GB-ROCHE-1000308

PATIENT
  Age: 57 Year
  Sex: Male
  Weight: 92.8 kg

DRUGS (7)
  1. PROPRANOLOL [Concomitant]
     Dates: start: 20101201
  2. PERINDOPRIL ERBUMINE [Concomitant]
     Dates: start: 20101201
  3. VEMURAFENIB [Suspect]
     Indication: METASTATIC MALIGNANT MELANOMA
     Dosage: TEMPORARILY INTERRUPTED
     Route: 048
     Dates: start: 20110920, end: 20110924
  4. SERTRALINE HYDROCHLORIDE [Concomitant]
     Dates: start: 20110601
  5. MIDAZOLAM [Concomitant]
     Dates: start: 20110925
  6. OMEPRAZOLE [Concomitant]
     Dates: start: 20111003
  7. VEMURAFENIB [Suspect]
     Dosage: DOSE REDUCED
     Dates: start: 20111019

REACTIONS (2)
  - TUMOUR HAEMORRHAGE [None]
  - FALL [None]
